FAERS Safety Report 6695454-4 (Version None)
Quarter: 2010Q2

REPORT INFORMATION
  Report Type: 
  Country: None (occurrence: None)
  Receive Date: 20100422
  Receipt Date: 20100422
  Transmission Date: 20101027
  Serious: Yes (Other)
  Sender: FDA-Public Use
  Company Number: None

PATIENT
  Age: 14 Month
  Sex: Female
  Weight: 7.0308 kg

DRUGS (1)
  1. AMOXICILLIN [Suspect]
     Indication: EAR INFECTION
     Dosage: 3/4 TSP 2X/DAY ORALLY
     Route: 048
     Dates: start: 20100329, end: 20100406

REACTIONS (3)
  - DRUG HYPERSENSITIVITY [None]
  - EPISTAXIS [None]
  - IRRITABILITY [None]
